FAERS Safety Report 13044540 (Version 1)
Quarter: 2016Q4

REPORT INFORMATION
  Report Type: Spontaneous
  Country: US (occurrence: US)
  Receive Date: 20161220
  Receipt Date: 20161220
  Transmission Date: 20170207
  Serious: No
  Sender: FDA-Public Use
  Company Number: US-ROCHE-1050131

PATIENT
  Sex: Male

DRUGS (4)
  1. INTERFERON ALFA NOS [Concomitant]
     Active Substance: INTERFERON ALFA-2A OR INTERFERON ALFA-2B
  2. ZELBORAF [Suspect]
     Active Substance: VEMURAFENIB
     Indication: MALIGNANT MELANOMA
     Route: 065
  3. TEMODAR [Concomitant]
     Active Substance: TEMOZOLOMIDE
  4. DACARBAZINE. [Concomitant]
     Active Substance: DACARBAZINE

REACTIONS (3)
  - Sunburn [Unknown]
  - Swelling [Unknown]
  - Nausea [Unknown]
